FAERS Safety Report 4583764-6 (Version None)
Quarter: 2005Q1

REPORT INFORMATION
  Report Type: 
  Country: None (occurrence: None)
  Receive Date: 20050211
  Receipt Date: 20050127
  Transmission Date: 20050727
  Serious: Yes (Hospitalization)
  Sender: FDA-Public Use
  Company Number: 8008771

PATIENT
  Age: 73 Year
  Sex: Male

DRUGS (3)
  1. KEPPRA [Suspect]
     Indication: PARTIAL SEIZURES
     Dosage: 1 DF /D PO
     Route: 048
     Dates: start: 20041110, end: 20041124
  2. DI-HYDAN [Suspect]
     Indication: PARTIAL SEIZURES
     Dosage: 300 MG /D PO
     Route: 048
     Dates: start: 20041028, end: 20041124
  3. AUGMENTIN '125' [Suspect]
     Indication: LUNG INFECTION
     Dosage: 1 DF /D PO
     Route: 048
     Dates: start: 20041118, end: 20041121

REACTIONS (5)
  - EOSINOPHIL COUNT INCREASED [None]
  - FACE OEDEMA [None]
  - LUNG INFECTION [None]
  - PYREXIA [None]
  - RASH MACULO-PAPULAR [None]
